FAERS Safety Report 9181437 (Version 4)
Quarter: 2013Q3

REPORT INFORMATION
  Report Type: Spontaneous
  Country: IE (occurrence: IE)
  Receive Date: 20130322
  Receipt Date: 20130827
  Transmission Date: 20140515
  Serious: Yes (Other)
  Sender: FDA-Public Use
  Company Number: IE-JNJFOC-20130308071

PATIENT
  Age: 38 Year
  Sex: Female

DRUGS (6)
  1. CONCERTA XL [Suspect]
     Indication: PRODUCT USED FOR UNKNOWN INDICATION
     Route: 048
     Dates: start: 201303
  2. CONCERTA XL [Suspect]
     Indication: PRODUCT USED FOR UNKNOWN INDICATION
     Route: 048
     Dates: start: 201010, end: 201112
  3. HUMIRA [Concomitant]
     Route: 065
  4. DIFENE [Concomitant]
     Route: 065
  5. NEURONTIN [Concomitant]
     Route: 065
  6. CERAZETTE [Concomitant]
     Route: 065

REACTIONS (1)
  - Tuberculosis [Recovered/Resolved]
